FAERS Safety Report 20955723 (Version 1)
Quarter: 2022Q2

REPORT INFORMATION
  Report Type: Spontaneous
  Country: US (occurrence: None)
  Receive Date: 20220613
  Receipt Date: 20220613
  Transmission Date: 20220721
  Serious: Yes (Other)
  Sender: FDA-Public Use
  Company Number: None

PATIENT
  Age: 79 Year
  Sex: Female
  Weight: 65.7 kg

DRUGS (7)
  1. OFEV [Suspect]
     Active Substance: NINTEDANIB
     Indication: Interstitial lung disease
     Dosage: FREQUENCY : TWICE A DAY;?
     Route: 048
     Dates: start: 20220228, end: 20220527
  2. AMLODIPINE [Concomitant]
     Active Substance: AMLODIPINE BESYLATE
  3. ASPIRIN [Concomitant]
     Active Substance: ASPIRIN
  4. GLIPIZIDE [Concomitant]
     Active Substance: GLIPIZIDE
  5. SIMVASTATIN [Concomitant]
     Active Substance: SIMVASTATIN
  6. Sitagliptin 50mg [Concomitant]
  7. Biotin 1000mcg [Concomitant]

REACTIONS (1)
  - Proteinuria [None]

NARRATIVE: CASE EVENT DATE: 20220513
